FAERS Safety Report 7987992-9 (Version None)
Quarter: 2011Q4

REPORT INFORMATION
  Report Type: 
  Country: None (occurrence: None)
  Receive Date: 20111216
  Receipt Date: 20110524
  Transmission Date: 20120403
  Serious: No
  Sender: FDA-Public Use
  Company Number: US-BRISTOL-MYERS SQUIBB COMPANY-15773443

PATIENT
  Age: 9 Year
  Sex: Female

DRUGS (2)
  1. ABILIFY [Suspect]
     Indication: ATTENTION DEFICIT/HYPERACTIVITY DISORDER
     Dosage: DOSE INCREASED TO 2.5MG
  2. ABILIFY [Suspect]
     Indication: AFFECTIVE DISORDER
     Dosage: DOSE INCREASED TO 2.5MG

REACTIONS (1)
  - SEDATION [None]
